FAERS Safety Report 25159681 (Version 1)
Quarter: 2025Q2

REPORT INFORMATION
  Report Type: Spontaneous
  Country: US (occurrence: US)
  Receive Date: 20250404
  Receipt Date: 20250404
  Transmission Date: 20250717
  Serious: Yes (Death, Life-Threatening, Hospitalization, Other)
  Sender: RANBAXY
  Company Number: US-SUN PHARMACEUTICAL INDUSTRIES LTD-2025R1-501135

PATIENT
  Age: 48 Year
  Sex: Male

DRUGS (5)
  1. PREDNISONE [Suspect]
     Active Substance: PREDNISONE
     Indication: Immunosuppressant drug therapy
     Route: 065
  2. TACROLIMUS [Suspect]
     Active Substance: TACROLIMUS
     Indication: Immunosuppressant drug therapy
     Route: 065
  3. MYCOPHENOLIC ACID [Suspect]
     Active Substance: MYCOPHENOLIC ACID
     Indication: Immunosuppressant drug therapy
     Route: 065
  4. ATOVAQUONE [Suspect]
     Active Substance: ATOVAQUONE
     Indication: Infection prophylaxis
     Route: 065
  5. VALGANCICLOVIR [Suspect]
     Active Substance: VALGANCICLOVIR
     Indication: Infection prophylaxis
     Route: 065

REACTIONS (10)
  - Acute respiratory distress syndrome [Fatal]
  - Acute kidney injury [Fatal]
  - Brain death [Fatal]
  - Condition aggravated [Fatal]
  - Cerebrovascular accident [Fatal]
  - Enterococcal infection [Fatal]
  - Haemophagocytic lymphohistiocytosis [Fatal]
  - Haemorrhagic transformation stroke [Fatal]
  - Pneumonia [Fatal]
  - Respiratory failure [Fatal]
